FAERS Safety Report 5688122-9 (Version None)
Quarter: 2008Q1

REPORT INFORMATION
  Report Type: 
  Country: None (occurrence: None)
  Receive Date: 20080327
  Receipt Date: 20080229
  Transmission Date: 20080703
  Serious: Yes (Hospitalization)
  Sender: FDA-Public Use
  Company Number: 080206871

PATIENT
  Age: 60 Year
  Sex: Female

DRUGS (13)
  1. MUCINEX DM [Suspect]
     Indication: COUGH
     Dosage: 1TABL, ONCE, ORAL
     Route: 048
     Dates: start: 20080223, end: 20080223
  2. BYETTA INJECTION (UNK) [Concomitant]
  3. NOVALOX (NOVALOX) [Concomitant]
  4. ASPIRIN 81 MG (UNK) [Concomitant]
  5. LEXAPRO [Concomitant]
  6. FOLIC ACID [Concomitant]
  7. KLONOPIN [Concomitant]
  8. RITALIN [Concomitant]
  9. VYTORIN (UNK) [Concomitant]
  10. TOPROL-XL [Concomitant]
  11. REGLAN [Concomitant]
  12. NEXIUM (UNK) [Concomitant]
  13. ZYRTEC [Concomitant]

REACTIONS (2)
  - BRONCHITIS [None]
  - LARYNGITIS [None]
